FAERS Safety Report 4899056-1 (Version None)
Quarter: 2006Q1

REPORT INFORMATION
  Report Type: 
  Country: None (occurrence: None)
  Receive Date: 20060202
  Receipt Date: 20060112
  Transmission Date: 20060701
  Serious: Yes (Death, Hospitalization)
  Sender: FDA-Public Use
  Company Number: PHRM2006FR00517

PATIENT
  Age: 88 Year
  Sex: Female
  Weight: 48.8 kg

DRUGS (1)
  1. EXELON [Suspect]
     Indication: DEMENTIA ALZHEIMER'S TYPE
     Dosage: 3 MG MORNING + 1.5 MG EVENING
     Route: 048
     Dates: start: 20051101

REACTIONS (6)
  - ATRIAL FIBRILLATION [None]
  - DYSPHAGIA [None]
  - HEMIPLEGIA [None]
  - ISCHAEMIC STROKE [None]
  - LOSS OF CONSCIOUSNESS [None]
  - MALAISE [None]
